FAERS Safety Report 17918104 (Version 1)
Quarter: 2020Q2

REPORT INFORMATION
  Report Type: Spontaneous
  Country: BR (occurrence: BR)
  Receive Date: 20200619
  Receipt Date: 20200619
  Transmission Date: 20200714
  Serious: Yes (Other)
  Sender: FDA-Public Use
  Company Number: BR-JNJFOC-20200613888

PATIENT
  Sex: Male

DRUGS (1)
  1. HALDOL DECANOATO [Suspect]
     Active Substance: HALOPERIDOL DECANOATE
     Indication: SCHIZOPHRENIA
     Route: 030
     Dates: start: 2007, end: 2016

REACTIONS (6)
  - Musculoskeletal stiffness [Unknown]
  - Muscle spasms [Unknown]
  - Tachycardia [Unknown]
  - Tremor [Unknown]
  - Intestinal obstruction [Unknown]
  - Visual impairment [Unknown]
